FAERS Safety Report 16658023 (Version 2)
Quarter: 2019Q3

REPORT INFORMATION
  Report Type: Spontaneous
  Country: US (occurrence: US)
  Receive Date: 20190801
  Receipt Date: 20190910
  Transmission Date: 20191004
  Serious: No
  Sender: FDA-Public Use
  Company Number: US-SUNOVION-2019SUN003093

PATIENT
  Sex: Female

DRUGS (3)
  1. SAPHRIS [Concomitant]
     Active Substance: ASENAPINE MALEATE
     Dosage: 5 MG, QD
     Dates: end: 20190717
  2. SAPHRIS [Concomitant]
     Active Substance: ASENAPINE MALEATE
     Indication: AFFECTIVE DISORDER
     Dosage: 10 MG
  3. LATUDA [Suspect]
     Active Substance: LURASIDONE HYDROCHLORIDE
     Indication: AFFECTIVE DISORDER
     Dosage: 20 MG, QD
     Route: 048
     Dates: start: 20190717, end: 20190719

REACTIONS (4)
  - Excessive eye blinking [Unknown]
  - Lacrimation increased [Unknown]
  - Photophobia [Unknown]
  - Off label use [Unknown]
